FAERS Safety Report 9235075 (Version 2)
Quarter: 2013Q3

REPORT INFORMATION
  Report Type: Spontaneous
  Country: CA (occurrence: CA)
  Receive Date: 20130416
  Receipt Date: 20130729
  Transmission Date: 20140515
  Serious: Yes (Death)
  Sender: FDA-Public Use
  Company Number: CA-B.I. PHARMACEUTICALS,INC./RIDGEFIELD-2013-BI-03060BP

PATIENT
  Age: 82 Year
  Sex: Male

DRUGS (2)
  1. MIRAPEX [Suspect]
     Indication: PARKINSON^S DISEASE
     Route: 048
     Dates: start: 20030404, end: 20061218
  2. MIRAPEX [Suspect]
     Route: 048

REACTIONS (4)
  - Death [Fatal]
  - Pathological gambling [Unknown]
  - Hallucination, visual [Not Recovered/Not Resolved]
  - Hyperphagia [Unknown]
